FAERS Safety Report 11515714 (Version 4)
Quarter: 2015Q4

REPORT INFORMATION
  Report Type: Spontaneous
  Country: JP (occurrence: JP)
  Receive Date: 20150916
  Receipt Date: 20151230
  Transmission Date: 20160304
  Serious: Yes (Life-Threatening)
  Sender: FDA-Public Use
  Company Number: JP-009507513-1509JPN007648

PATIENT
  Age: 90 Year
  Sex: Female

DRUGS (6)
  1. REFLEX [Suspect]
     Active Substance: MIRTAZAPINE
     Indication: DEPRESSION
     Dosage: 15 MG, QD
     Route: 048
     Dates: start: 20150805, end: 20150817
  2. REFLEX [Suspect]
     Active Substance: MIRTAZAPINE
     Dosage: 7.5 MG, QD
     Route: 048
     Dates: start: 20150818, end: 20150828
  3. SENNOSIDES. [Concomitant]
     Active Substance: SENNOSIDES
     Dosage: DAILY DOSE: 12 MG
     Route: 048
  4. SARPOGRELATE HYDROCHLORIDE [Concomitant]
     Active Substance: SARPOGRELATE
     Dosage: DAILY DOSE: 200 MG
     Route: 048
  5. BERAPROST SODIUM [Concomitant]
     Active Substance: BERAPROST SODIUM
     Dosage: DAILY DOSE: 20 MICROGRAM
     Route: 048
  6. FAMOTIDINE. [Concomitant]
     Active Substance: FAMOTIDINE
     Dosage: DAILY DOSE: 10 MG
     Route: 048

REACTIONS (2)
  - Mouth ulceration [Not Recovered/Not Resolved]
  - Oesophageal ulcer [Not Recovered/Not Resolved]

NARRATIVE: CASE EVENT DATE: 201508
